FAERS Safety Report 23064088 (Version 1)
Quarter: 2023Q4

REPORT INFORMATION
  Report Type: Spontaneous
  Country: US (occurrence: US)
  Receive Date: 20231013
  Receipt Date: 20231013
  Transmission Date: 20240110
  Serious: No
  Sender: FDA-Public Use
  Company Number: US-ABBVIE-2309486US

PATIENT
  Sex: Female

DRUGS (2)
  1. NAMENDA [Suspect]
     Active Substance: MEMANTINE HYDROCHLORIDE
     Indication: Tremor
     Dosage: DOSE DESC: UNK
     Dates: end: 202302
  2. KESIMPTA [Concomitant]
     Active Substance: OFATUMUMAB
     Indication: Product used for unknown indication
     Dosage: DOSE DESC: UNK

REACTIONS (6)
  - Depression [Unknown]
  - Aphasia [Unknown]
  - Pruritus [Unknown]
  - Feeling abnormal [Unknown]
  - Feeling hot [Unknown]
  - Off label use [Unknown]
